FAERS Safety Report 24289850 (Version 1)
Quarter: 2024Q3

REPORT INFORMATION
  Report Type: Report from Study
  Country: US (occurrence: US)
  Receive Date: 20240906
  Receipt Date: 20240906
  Transmission Date: 20241017
  Serious: Yes (Other)
  Sender: TEVA
  Company Number: US-TEVA-VS-3239164

PATIENT
  Age: 69 Year
  Sex: Female
  Weight: 89.36 kg

DRUGS (1)
  1. AUSTEDO XR [Suspect]
     Active Substance: DEUTETRABENAZINE
     Indication: Tardive dyskinesia
     Route: 065
     Dates: start: 20240806

REACTIONS (13)
  - Heart rate irregular [Unknown]
  - Fall [Unknown]
  - Impatience [Unknown]
  - Somnolence [Recovered/Resolved]
  - Anger [Unknown]
  - Cardiac disorder [Unknown]
  - Impaired driving ability [Recovered/Resolved]
  - Dyspnoea [Unknown]
  - Loss of personal independence in daily activities [Recovered/Resolved]
  - Sleep disorder [Unknown]
  - Blood glucose decreased [Unknown]
  - Fatigue [Unknown]
  - Drug interaction [Unknown]

NARRATIVE: CASE EVENT DATE: 20240801
